FAERS Safety Report 10153899 (Version 1)
Quarter: 2014Q2

REPORT INFORMATION
  Report Type: Spontaneous
  Country: IT (occurrence: None)
  Receive Date: 20140502
  Receipt Date: 20140502
  Transmission Date: 20141212
  Serious: Yes (Other)
  Sender: FDA-Public Use
  Company Number: 2014AP002677

PATIENT
  Age: 80 Year
  Sex: Female

DRUGS (3)
  1. LEVOFLOXACIN (LEVOFLOXACIN) UNKNOWN, 1000MG [Suspect]
     Indication: ENDOCARDITIS BACTERIAL
     Route: 048
     Dates: start: 20140228, end: 20140405
  2. INVANZ (ERTAPENEM SODIUM) POWDER FOR INJECTION [Suspect]
     Indication: ENDOCARDITIS BACTERIAL
     Route: 042
     Dates: start: 20140322, end: 20140409
  3. MEROPENEM (MEROPENEM) [Concomitant]

REACTIONS (3)
  - Psychotic disorder [None]
  - Hallucination [None]
  - Condition aggravated [None]
